FAERS Safety Report 5943609-6 (Version None)
Quarter: 2008Q4

REPORT INFORMATION
  Report Type: 
  Country: None (occurrence: None)
  Receive Date: 20081104
  Receipt Date: 20081026
  Transmission Date: 20090506
  Serious: Yes (Death)
  Sender: FDA-Public Use
  Company Number: CHPA2008US17661

PATIENT
  Age: 57 Year
  Sex: Female
  Weight: 67.1 kg

DRUGS (2)
  1. BENEFIBER SUGAR FREE (NCH) (WHEAT DEXTRIN) CHEWABLE TABLET [Suspect]
     Indication: ABNORMAL FAECES
     Dosage: 3330.0 MG, QID, ORAL
     Route: 048
     Dates: start: 20080101
  2. DRUG THERAPY NOS (DRUG THERAPY NOS) [Concomitant]

REACTIONS (2)
  - CARDIAC DISORDER [None]
  - OVERDOSE [None]
